FAERS Safety Report 4797400-7 (Version None)
Quarter: 2005Q4

REPORT INFORMATION
  Report Type: 
  Country: None (occurrence: None)
  Receive Date: 20051011
  Receipt Date: 20051011
  Transmission Date: 20060501
  Serious: Yes (Death)
  Sender: FDA-Public Use
  Company Number: None

PATIENT
  Age: 15 Year
  Sex: Female
  Weight: 49.8957 kg

DRUGS (2)
  1. ZOLOFT [Suspect]
     Indication: DEPRESSION
     Dosage: 100MG/THEN INCREASED TO 150 M PO
     Route: 048
     Dates: start: 20050604, end: 20050815
  2. PROZAC [Suspect]
     Indication: DEPRESSION
     Dosage: 20 MG TO 40 MG TO 20 MG PO
     Route: 048
     Dates: start: 20050815, end: 20050911

REACTIONS (6)
  - ANXIETY [None]
  - BIPOLAR DISORDER [None]
  - DRUG INEFFECTIVE [None]
  - HYPERHIDROSIS [None]
  - INSOMNIA [None]
  - OVERDOSE [None]
